FAERS Safety Report 7621149 (Version 5)
Quarter: 2014Q1

REPORT INFORMATION
  Report Type: Spontaneous
  Country: US (occurrence: US)
  Receive Date: 20101008
  Receipt Date: 20140317
  Transmission Date: 20141002
  Serious: Yes (Hospitalization, Other)
  Sender: FDA-Public Use
  Company Number: US-BAYER-201035669NA

PATIENT
  Age: 26 Year
  Sex: Female
  Weight: 97.51 kg

DRUGS (5)
  1. MIRENA [Suspect]
     Indication: CONTRACEPTION
     Dosage: 20 MCG/24HR, CONT
     Route: 015
     Dates: start: 20100226, end: 20100930
  2. METHADONE [Concomitant]
     Indication: PAIN
     Dosage: 55 MG, UNK
     Dates: start: 2008
  3. PROZAC [Concomitant]
     Indication: DEPRESSION
     Dosage: 40 MG, UNK
  4. ATARAX [Concomitant]
     Indication: ANXIETY
  5. SYNTHROID [Concomitant]

REACTIONS (17)
  - Uterine perforation [None]
  - Device dislocation [None]
  - Vaginal haemorrhage [Recovering/Resolving]
  - Genital haemorrhage [None]
  - Weight increased [Recovering/Resolving]
  - Hyperhidrosis [Recovering/Resolving]
  - Fatigue [Recovering/Resolving]
  - Flushing [Recovering/Resolving]
  - Dizziness [Recovering/Resolving]
  - Injury [None]
  - Medical device pain [None]
  - Infection [None]
  - Uterine disorder [None]
  - Device dislocation [None]
  - Depression [None]
  - Anxiety [None]
  - Mental disorder [None]
